FAERS Safety Report 4690413-5 (Version None)
Quarter: 2005Q2

REPORT INFORMATION
  Report Type: 
  Country: None (occurrence: None)
  Receive Date: 20050614
  Receipt Date: 20050614
  Transmission Date: 20051028
  Serious: Yes (Hospitalization)
  Sender: FDA-Public Use
  Company Number: None

PATIENT
  Sex: Male

DRUGS (17)
  1. LINEZOLID  PFIZER [Suspect]
     Indication: BACTERAEMIA
     Dates: start: 20040601, end: 20041228
  2. LINEZOLID  PFIZER [Suspect]
     Indication: STAPHYLOCOCCAL INFECTION
     Dates: start: 20040601, end: 20041228
  3. COREG [Concomitant]
  4. SYNTHROID [Concomitant]
  5. HYDRALAZINE [Concomitant]
  6. ALDACTAZIDE [Concomitant]
  7. ALTACE [Concomitant]
  8. RIFAMPIN [Concomitant]
  9. LEXAPRO [Concomitant]
  10. WELLBUTRIN [Concomitant]
  11. DEMEROL [Concomitant]
  12. ZYVOX [Concomitant]
  13. DEMADEX [Concomitant]
  14. ASPIRIN [Concomitant]
  15. PLAVIX [Concomitant]
  16. NEURONTIN [Concomitant]
  17. ZAROXOLYN [Concomitant]

REACTIONS (6)
  - COLOUR BLINDNESS [None]
  - INFLAMMATION [None]
  - NEPHRECTOMY [None]
  - NEUROPATHY PERIPHERAL [None]
  - OPTIC NEURITIS [None]
  - VISUAL ACUITY REDUCED [None]
